FAERS Safety Report 5606036-7 (Version None)
Quarter: 2008Q1

REPORT INFORMATION
  Report Type: 
  Country: None (occurrence: None)
  Receive Date: 20080123
  Receipt Date: 20080115
  Transmission Date: 20080703
  Serious: Yes (Hospitalization)
  Sender: FDA-Public Use
  Company Number: CIP08000064

PATIENT
  Age: 78 Year
  Sex: Female

DRUGS (18)
  1. RISEDRONATE SODIUM [Suspect]
     Dosage: ORAL
     Route: 048
     Dates: end: 20070831
  2. ATACAND [Suspect]
     Indication: HYPERTENSION
     Dosage: ORAL
     Route: 048
     Dates: end: 20070831
  3. CIPRALEX /01588501/ (ESCITALOPRAM) [Concomitant]
  4. SPIRIVA [Concomitant]
  5. ABILIFY [Concomitant]
  6. LYRICA [Concomitant]
  7. ACETYCYSTEIN (ACETYLCYSTEINE) [Concomitant]
  8. ZOPIKLON (ZOPICLONE) [Concomitant]
  9. FOLACIN /11124201/ (FOLIC ACID) [Concomitant]
  10. ACETAMINOPHEN [Concomitant]
  11. BEHEPAN (CYANOCOBALAMIN) [Concomitant]
  12. PROPAVAN (PROPIOMAZINE MALEATE) [Concomitant]
  13. DIAZEPAM [Concomitant]
  14. LAXOBERAL (SODIUM PICOSULFATE) [Concomitant]
  15. PEVARYL /00418501/ (ECONAZOLE) [Concomitant]
  16. LASIX-R (RESERPINE, FUROSEMIDE) [Concomitant]
  17. ASPIRIN [Concomitant]
  18. DOLCONTIN /00036302/ (MORPHINE SULFATE) [Concomitant]

REACTIONS (5)
  - BLOOD CREATININE INCREASED [None]
  - CEREBRAL INFARCTION [None]
  - GENERAL PHYSICAL HEALTH DETERIORATION [None]
  - HYPOCALCAEMIA [None]
  - MUSCLE SPASMS [None]
